FAERS Safety Report 7725846-3 (Version None)
Quarter: 2011Q3

REPORT INFORMATION
  Report Type: 
  Country: None (occurrence: None)
  Receive Date: 20110902
  Receipt Date: 20110823
  Transmission Date: 20111222
  Serious: Yes (Hospitalization)
  Sender: FDA-Public Use
  Company Number: US-PFIZER INC-2011190924

PATIENT
  Sex: Female

DRUGS (4)
  1. CORTISONE ACETATE [Suspect]
     Dosage: UNK
  2. METHOTREXATE [Suspect]
     Dosage: UNK
  3. ENBREL [Suspect]
     Indication: PSORIASIS
  4. ENBREL [Suspect]
     Indication: PSORIATIC ARTHROPATHY
     Dosage: 50 MG, UNK
     Dates: start: 20010101, end: 20100101

REACTIONS (5)
  - LIP INJURY [None]
  - PSORIASIS [None]
  - HYPERSENSITIVITY [None]
  - OEDEMA PERIPHERAL [None]
  - SOFT TISSUE INJURY [None]
